FAERS Safety Report 7676173-4 (Version None)
Quarter: 2011Q3

REPORT INFORMATION
  Report Type: 
  Country: None (occurrence: None)
  Receive Date: 20110811
  Receipt Date: 20110801
  Transmission Date: 20111222
  Serious: Yes (Hospitalization, Other)
  Sender: FDA-Public Use
  Company Number: US-JNJFOC-20110801296

PATIENT
  Sex: Male
  Weight: 97.75 kg

DRUGS (4)
  1. INVEGA SUSTENNA [Suspect]
     Indication: PRODUCT USED FOR UNKNOWN INDICATION
     Route: 030
     Dates: start: 20110208
  2. PROZAC [Concomitant]
     Route: 048
     Dates: start: 20110127
  3. RISPERDAL [Concomitant]
     Route: 048
     Dates: start: 20110127
  4. INVEGA SUSTENNA [Suspect]
     Route: 030

REACTIONS (2)
  - INJECTION SITE ABSCESS [None]
  - CELLULITIS [None]
